FAERS Safety Report 13747516 (Version 1)
Quarter: 2017Q3

REPORT INFORMATION
  Report Type: Spontaneous
  Country: US (occurrence: US)
  Receive Date: 20170712
  Receipt Date: 20170712
  Transmission Date: 20171127
  Serious: Yes (Hospitalization, Other)
  Sender: FDA-Public Use
  Company Number: US-IMPAX LABORATORIES, INC-2017-IPXL-02050

PATIENT
  Age: 56 Year
  Sex: Male

DRUGS (1)
  1. METFORMIN HYDROCHLORIDE ER [Suspect]
     Active Substance: METFORMIN HYDROCHLORIDE
     Indication: TYPE 2 DIABETES MELLITUS
     Dosage: UNK
     Route: 065

REACTIONS (7)
  - Hyperglycaemia [Recovered/Resolved]
  - Back pain [Unknown]
  - Hyperkalaemia [Recovering/Resolving]
  - Blood creatinine increased [Recovered/Resolved]
  - Fall [Unknown]
  - Overdose [Recovering/Resolving]
  - Lactic acidosis [Recovering/Resolving]
